FAERS Safety Report 9825163 (Version 1)
Quarter: 2013Q4

REPORT INFORMATION
  Report Type: Spontaneous
  Country: US (occurrence: None)
  Receive Date: 20131223
  Receipt Date: 20131223
  Transmission Date: 20140711
  Serious: Yes (Other)
  Sender: FDA-Public Use
  Company Number: 221541LEO

PATIENT
  Age: 58 Year
  Sex: Male

DRUGS (1)
  1. PICATO [Suspect]
     Dosage: 1 IN 1 D, TOPICAL
     Route: 061
     Dates: start: 20130403

REACTIONS (2)
  - Application site pruritus [None]
  - Drug administered at inappropriate site [None]
